FAERS Safety Report 10099543 (Version 1)
Quarter: 2014Q2

REPORT INFORMATION
  Report Type: Report from Study
  Country: CA (occurrence: CA)
  Receive Date: 20140423
  Receipt Date: 20140423
  Transmission Date: 20141212
  Serious: Yes (Hospitalization)
  Sender: FDA-Public Use
  Company Number: CA-JNJFOC-20140414289

PATIENT
  Age: 35 Year
  Sex: Female
  Weight: 94.1 kg

DRUGS (5)
  1. REMICADE [Suspect]
     Indication: COLITIS ULCERATIVE
     Route: 042
     Dates: start: 201007
  2. IMURAN [Concomitant]
     Indication: COLITIS ULCERATIVE
     Route: 065
  3. CIPRALEX [Concomitant]
     Route: 065
  4. MULTIVITAMINS [Concomitant]
     Route: 065
  5. IRON [Concomitant]
     Route: 065

REACTIONS (3)
  - Mammoplasty [Recovered/Resolved]
  - Post procedural infection [Recovered/Resolved]
  - Diarrhoea [Unknown]
